FAERS Safety Report 24711798 (Version 1)
Quarter: 2024Q4

REPORT INFORMATION
  Report Type: Spontaneous
  Country: US (occurrence: US)
  Receive Date: 20241209
  Receipt Date: 20241209
  Transmission Date: 20250115
  Serious: Yes (Hospitalization)
  Sender: COOPERSURGICAL
  Company Number: US-COOPERSURGICAL, INC.-2024CPS003786

PATIENT
  Sex: Female

DRUGS (1)
  1. COPPER [Suspect]
     Active Substance: COPPER
     Route: 015

REACTIONS (1)
  - Bladder perforation [Recovered/Resolved]
